FAERS Safety Report 19944638 (Version 1)
Quarter: 2021Q4

REPORT INFORMATION
  Report Type: 
  Country: US (occurrence: US)
  Receive Date: 20211011
  Receipt Date: 20211011
  Transmission Date: 20220303
  Serious: No
  Sender: FDA-Public Use
  Company Number: US-C B FLEET CO INC-202012-US-004568

PATIENT
  Sex: Female

DRUGS (2)
  1. MONISTAT 3 [Suspect]
     Active Substance: MICONAZOLE NITRATE
     Indication: Fungal infection
     Dosage: USED VAGINALLY FOR TWO NIGHTS
     Route: 067
  2. DIFLUCAN [Concomitant]
     Active Substance: FLUCONAZOLE

REACTIONS (5)
  - Vulvovaginal burning sensation [Recovered/Resolved]
  - Abdominal discomfort [Recovered/Resolved]
  - Dyspnoea [Recovered/Resolved]
  - Palpitations [Recovered/Resolved]
  - Blood pressure increased [Recovered/Resolved]

NARRATIVE: CASE EVENT DATE: 20201217
